FAERS Safety Report 7777216-X (Version None)
Quarter: 2011Q3

REPORT INFORMATION
  Report Type: 
  Country: None (occurrence: None)
  Receive Date: 20110926
  Receipt Date: 20110913
  Transmission Date: 20111222
  Serious: Yes (Hospitalization)
  Sender: FDA-Public Use
  Company Number: PHHY2011DE82098

PATIENT
  Sex: Female

DRUGS (1)
  1. CERTICAN [Suspect]
     Indication: IMMUNOSUPPRESSION
     Dosage: UNK UKN, UNK
     Route: 048

REACTIONS (1)
  - PSYCHOTIC DISORDER [None]
